FAERS Safety Report 23216971 (Version 1)
Quarter: 2023Q4

REPORT INFORMATION
  Report Type: Report from Study
  Country: JP (occurrence: JP)
  Receive Date: 20231122
  Receipt Date: 20231122
  Transmission Date: 20240110
  Serious: Yes (Hospitalization)
  Sender: FDA-Public Use
  Company Number: JP-ALXN-A202300654

PATIENT
  Age: 41 Year
  Sex: Male

DRUGS (20)
  1. STRENSIQ [Suspect]
     Active Substance: ASFOTASE ALFA
     Indication: Hypophosphatasia
     Dosage: 0.6 MILLIGRAM/KILOGRAM, QW
     Route: 058
     Dates: start: 20151113, end: 20160405
  2. STRENSIQ [Suspect]
     Active Substance: ASFOTASE ALFA
     Dosage: 0.6 MILLIGRAM/KILOGRAM
     Route: 058
     Dates: start: 20160406, end: 20160517
  3. STRENSIQ [Suspect]
     Active Substance: ASFOTASE ALFA
     Dosage: 0.6 MILLIGRAM/KILOGRAM, Q5D
     Route: 058
     Dates: start: 20160518, end: 20220614
  4. STRENSIQ [Suspect]
     Active Substance: ASFOTASE ALFA
     Dosage: 0.6 MILLIGRAM/KILOGRAM, Q6D
     Route: 058
     Dates: start: 20220615, end: 20230516
  5. STRENSIQ [Suspect]
     Active Substance: ASFOTASE ALFA
     Dosage: 0.6 MILLIGRAM/KILOGRAM (ONCE EVERY 6 DAYS)
     Route: 065
     Dates: start: 20221113, end: 20230516
  6. STRENSIQ [Suspect]
     Active Substance: ASFOTASE ALFA
     Dosage: 0.6 MILLIGRAM/KILOGRAM (ONCE EVERY 6.5 DAYS)
     Route: 065
     Dates: start: 20230517
  7. SODIUM PICOSULFATE [Concomitant]
     Active Substance: SODIUM PICOSULFATE
     Indication: Prophylaxis
     Dosage: PROPER QUANTITY, QD
     Route: 048
  8. PREDNISOLONE [Concomitant]
     Active Substance: PREDNISOLONE
     Indication: Prophylaxis
     Dosage: 5 MILLIGRAM, QD
     Route: 048
  9. PREDNISOLONE [Concomitant]
     Active Substance: PREDNISOLONE
     Dosage: 1 MILLIGRAM, QD
     Route: 048
  10. ZOPICLONE [Concomitant]
     Active Substance: ZOPICLONE
     Indication: Prophylaxis
     Dosage: 7.5 MILLIGRAM, QD
     Route: 048
  11. ETIZOLAM [Concomitant]
     Active Substance: ETIZOLAM
     Indication: Prophylaxis
     Dosage: 0.5 MILLIGRAM, BID
     Route: 048
  12. CYMBALTA [Concomitant]
     Active Substance: DULOXETINE HYDROCHLORIDE
     Indication: Prophylaxis
     Dosage: 20 MILLIGRAM, QD
     Route: 048
  13. KETOPROFEN [Concomitant]
     Active Substance: KETOPROFEN
     Indication: Prophylaxis
     Dosage: 120 MILLIGRAM, QD
     Route: 062
  14. BISOPROLOL FUMARATE [Concomitant]
     Active Substance: BISOPROLOL FUMARATE
     Indication: Prophylaxis
     Dosage: 2.5 MILLIGRAM, QD
     Route: 048
  15. RABEPRAZOLE SODIUM [Concomitant]
     Active Substance: RABEPRAZOLE SODIUM
     Indication: Prophylaxis
     Dosage: 10 MILLIGRAM, QD
     Route: 048
     Dates: start: 20140711
  16. RABEPRAZOLE SODIUM [Concomitant]
     Active Substance: RABEPRAZOLE SODIUM
     Indication: Abdominal pain upper
  17. STRATTERA [Concomitant]
     Active Substance: ATOMOXETINE HYDROCHLORIDE
     Indication: Prophylaxis
     Dosage: 40 MILLIGRAM, QD
     Route: 048
  18. ROSUVASTATIN CALCIUM [Concomitant]
     Active Substance: ROSUVASTATIN CALCIUM
     Indication: Prophylaxis
     Dosage: 2.5 MILLIGRAM, QD
     Route: 048
  19. AMITIZA [Concomitant]
     Active Substance: LUBIPROSTONE
     Indication: Prophylaxis
     Dosage: 12 MICROGRAM, BID
     Route: 048
     Dates: start: 20220218
  20. TRAMCET [Concomitant]
     Active Substance: ACETAMINOPHEN\TRAMADOL
     Indication: Prophylaxis
     Dosage: 1 DOSAGE FORM, TID
     Route: 048
     Dates: end: 20220218

REACTIONS (3)
  - Ligament injury [Recovered/Resolved]
  - Ankle fracture [Recovered/Resolved]
  - Off label use [Unknown]

NARRATIVE: CASE EVENT DATE: 20220615
